FAERS Safety Report 4819845-9 (Version None)
Quarter: 2005Q4

REPORT INFORMATION
  Report Type: 
  Country: None (occurrence: None)
  Receive Date: 20051102
  Receipt Date: 20051026
  Transmission Date: 20060501
  Serious: Yes (Death, Hospitalization)
  Sender: FDA-Public Use
  Company Number: 430001M05SWE

PATIENT
  Age: 32 Year
  Sex: Male

DRUGS (6)
  1. NOVANTRONE [Suspect]
     Indication: MULTIPLE SCLEROSIS
     Dates: start: 20030301, end: 20050501
  2. MODIODAL (MODAFINIL) [Concomitant]
  3. CITALOPRAM (CITALOPRAM /00582601) [Concomitant]
  4. HIPREX (METHENAMINE HIPURATE) [Concomitant]
  5. IMOVEN (ZOPICLONE) [Concomitant]
  6. TOLTERODINE TARTRATE [Concomitant]

REACTIONS (1)
  - GLIOBLASTOMA MULTIFORME [None]
